FAERS Safety Report 19946844 (Version 1)
Quarter: 2021Q4

REPORT INFORMATION
  Report Type: Spontaneous
  Country: IT (occurrence: IT)
  Receive Date: 20211012
  Receipt Date: 20211012
  Transmission Date: 20220303
  Serious: Yes (Hospitalization)
  Sender: FDA-Public Use
  Company Number: IT-SOFAR-202100112

PATIENT
  Age: 42 Year
  Sex: Male

DRUGS (2)
  1. MESALAMINE [Suspect]
     Active Substance: MESALAMINE
     Indication: Colitis ulcerative
     Route: 065
  2. BECLOMETHASONE DIPROPIONATE [Concomitant]
     Active Substance: BECLOMETHASONE DIPROPIONATE
     Indication: Colitis ulcerative
     Dosage: UNK
     Route: 061

REACTIONS (5)
  - Anaemia [Recovered/Resolved]
  - Haematuria [Recovered/Resolved]
  - Eosinophilia [Recovered/Resolved]
  - Pericarditis [Recovered/Resolved]
  - Eosinophilic pneumonia [Recovered/Resolved]
